FAERS Safety Report 5228657-6 (Version None)
Quarter: 2007Q1

REPORT INFORMATION
  Report Type: 
  Country: None (occurrence: None)
  Receive Date: 20070205
  Receipt Date: 20070201
  Transmission Date: 20070707
  Serious: Yes (Hospitalization)
  Sender: FDA-Public Use
  Company Number: US-GLAXOSMITHKLINE-A0638039A

PATIENT
  Sex: Male
  Weight: 2.3 kg

DRUGS (10)
  1. LAMOTRIGINE [Suspect]
     Indication: BIPOLAR DISORDER
  2. DEPO-PROVERA [Concomitant]
  3. PRENATAL VITAMINS [Concomitant]
  4. FOLIC ACID [Concomitant]
     Dosage: 1MG PER DAY
  5. KLONOPIN [Concomitant]
     Dosage: 1MG PER DAY
  6. PROZAC [Concomitant]
     Dosage: 60MG PER DAY
  7. TRAZODONE HCL [Concomitant]
     Dosage: 100MG PER DAY
  8. VISTARIL [Concomitant]
     Dosage: 300MG PER DAY
  9. XANAX [Concomitant]
  10. MARIJUANA [Concomitant]

REACTIONS (5)
  - CAESAREAN SECTION [None]
  - CONGENITAL ARTERIOVENOUS FISTULA [None]
  - DRUG EXPOSURE DURING PREGNANCY [None]
  - MICROCEPHALY [None]
  - MUSCLE SPASTICITY [None]
